FAERS Safety Report 11771535 (Version 2)
Quarter: 2015Q4

REPORT INFORMATION
  Report Type: Spontaneous
  Country: IN (occurrence: IN)
  Receive Date: 20151124
  Receipt Date: 20151130
  Transmission Date: 20160304
  Serious: Yes (Other)
  Sender: FDA-Public Use
  Company Number: IN-CIPLA LTD.-2015IN08846

PATIENT

DRUGS (3)
  1. VIRADAY [Suspect]
     Active Substance: EFAVIRENZ\EMTRICITABINE\TENOFOVIR DISOPROXIL FUMARATE
     Dosage: 1 TABLET ONCE A DAY
     Route: 048
  2. VIRADAY [Suspect]
     Active Substance: EFAVIRENZ\EMTRICITABINE\TENOFOVIR DISOPROXIL FUMARATE
     Indication: ANTIRETROVIRAL THERAPY
     Dosage: 1 TABLET ONCE A DAY
     Route: 048
  3. VIRADAY [Suspect]
     Active Substance: EFAVIRENZ\EMTRICITABINE\TENOFOVIR DISOPROXIL FUMARATE
     Indication: HIV TEST POSITIVE
     Dosage: 1 TABLET ONCE A DAY
     Route: 048

REACTIONS (3)
  - Mouth ulceration [Recovered/Resolved]
  - Drug ineffective [Unknown]
  - Viral load increased [Unknown]
